FAERS Safety Report 13647734 (Version 2)
Quarter: 2017Q2

REPORT INFORMATION
  Report Type: Spontaneous
  Country: GR (occurrence: GR)
  Receive Date: 20170613
  Receipt Date: 20170615
  Transmission Date: 20170830
  Serious: Yes (Other)
  Sender: FDA-Public Use
  Company Number: GR-GLAXOSMITHKLINE-GR2017GSK090282

PATIENT
  Age: 70 Year
  Sex: Female

DRUGS (1)
  1. VOLTAREN [Suspect]
     Active Substance: DICLOFENAC SODIUM
     Indication: PAIN
     Route: 065

REACTIONS (7)
  - Dry skin [Unknown]
  - Pain [Unknown]
  - Skin discolouration [Unknown]
  - Lymphadenopathy [Unknown]
  - Weight decreased [Unknown]
  - Application site bruise [Unknown]
  - Skin wrinkling [Unknown]
